FAERS Safety Report 16831002 (Version 1)
Quarter: 2019Q3

REPORT INFORMATION
  Report Type: Spontaneous
  Country: US (occurrence: US)
  Receive Date: 20190920
  Receipt Date: 20190920
  Transmission Date: 20191005
  Serious: No
  Sender: FDA-Public Use
  Company Number: US-BTG-201800160

PATIENT
  Age: 66 Year
  Sex: Male

DRUGS (3)
  1. VARITHENA [Suspect]
     Active Substance: POLIDOCANOL
     Indication: PERIPHERAL VENOUS DISEASE
     Dosage: 8 ML, LEFT DISTAL GSV AND TRIBUTARIES
     Dates: start: 20181108, end: 20181108
  2. VARITHENA [Suspect]
     Active Substance: POLIDOCANOL
     Indication: PERIPHERAL VENOUS DISEASE
     Dosage: RIGHT DISTAL GSV AND TRIBUTARIES
     Dates: start: 20181031, end: 20181031
  3. XARELTO [Interacting]
     Active Substance: RIVAROXABAN
     Indication: DEEP VEIN THROMBOSIS
     Dosage: UNK
     Dates: start: 20181114

REACTIONS (2)
  - Deep vein thrombosis [Recovering/Resolving]
  - Swelling [Unknown]

NARRATIVE: CASE EVENT DATE: 20181114
